FAERS Safety Report 19143199 (Version 2)
Quarter: 2021Q2

REPORT INFORMATION
  Report Type: Spontaneous
  Country: US (occurrence: US)
  Receive Date: 20210416
  Receipt Date: 20210421
  Transmission Date: 20210717
  Serious: Yes (Life-Threatening, Hospitalization, Other)
  Sender: FDA-Public Use
  Company Number: US-JNJFOC-20210416090

PATIENT
  Age: 40 Year
  Sex: Male

DRUGS (2)
  1. IMODIUM [Suspect]
     Active Substance: LOPERAMIDE HYDROCHLORIDE
     Indication: PRODUCT USED FOR UNKNOWN INDICATION
     Dosage: UP TO 100 TABLETS OF LOPERAMIDE 2MG DAILY FOR 5 YEARS
     Route: 065
  2. DIPHENHYDRAMINE HYDROCHLORIDE. [Concomitant]
     Active Substance: DIPHENHYDRAMINE HYDROCHLORIDE

REACTIONS (6)
  - Cardiac arrest [Unknown]
  - Mental status changes [Recovered/Resolved]
  - Torsade de pointes [Recovered/Resolved]
  - Hyperthermia [Unknown]
  - Electrocardiogram QT prolonged [Not Recovered/Not Resolved]
  - Overdose [Unknown]
